FAERS Safety Report 7488154-4 (Version None)
Quarter: 2011Q2

REPORT INFORMATION
  Report Type: 
  Country: None (occurrence: None)
  Receive Date: 20110518
  Receipt Date: 20110506
  Transmission Date: 20111010
  Serious: Yes (Hospitalization)
  Sender: FDA-Public Use
  Company Number: DE-ELI_LILLY_AND_COMPANY-DE201105001706

PATIENT
  Sex: Male
  Weight: 83 kg

DRUGS (18)
  1. SYMBICORT [Concomitant]
     Indication: CHRONIC OBSTRUCTIVE PULMONARY DISEASE
     Dosage: UNK
  2. PANTOPRAZOLE [Concomitant]
     Dosage: UNK
     Dates: start: 20110201
  3. FOSTER                             /00500401/ [Concomitant]
     Indication: DYSPNOEA
     Dosage: UNK
     Dates: start: 20110201
  4. DEXPANTHENOL [Concomitant]
     Indication: RASH
     Dosage: UNK
     Dates: start: 20110301
  5. AMLODIPINE BESYLATE [Concomitant]
     Indication: HYPERTENSION
     Dosage: UNK
  6. ARIXTRA [Concomitant]
     Indication: THROMBOSIS PROPHYLAXIS
     Dosage: UNK
     Dates: start: 20110201
  7. MCP [Concomitant]
     Indication: NAUSEA
     Dosage: UNK
     Dates: start: 20110201
  8. PREDNISOLONE [Concomitant]
     Indication: RASH
     Dosage: UNK
     Dates: start: 20110301
  9. KALINOR [Concomitant]
     Indication: HYPOKALAEMIA
     Dosage: UNK
     Dates: start: 20110311
  10. DELIX PLUS [Concomitant]
     Indication: HYPERTENSION
     Dosage: UNK
  11. NATRIUMFLUORIDE [Concomitant]
     Indication: HYPONATRAEMIA
     Dosage: UNK
     Dates: start: 20110310
  12. NECITUMUMAB (11F8) (LY3012211) [Suspect]
     Indication: NON-SMALL CELL LUNG CANCER
     Dosage: 800 MG, UNK
     Dates: start: 20110210
  13. CISPLATIN [Suspect]
     Indication: NON-SMALL CELL LUNG CANCER
     Dosage: 150 MG, UNK
     Dates: start: 20110210
  14. TORSEMIDE [Concomitant]
     Indication: HYPERTENSION
     Dosage: UNK
  15. SPIRIVA [Concomitant]
     Indication: CHRONIC OBSTRUCTIVE PULMONARY DISEASE
     Dosage: UNK
  16. BISOPROLOL FUMARATE [Concomitant]
     Indication: HYPERTENSION
     Dosage: UNK
  17. CALCIUM +D3 [Concomitant]
     Indication: OSTEOPOROSIS
     Dosage: UNK
     Dates: start: 20110303
  18. GEMCITABINE HYDROCHLORIDE [Suspect]
     Indication: NON-SMALL CELL LUNG CANCER
     Dosage: 2500 MG, UNK
     Dates: start: 20110210

REACTIONS (1)
  - PANCYTOPENIA [None]
